FAERS Safety Report 13569492 (Version 3)
Quarter: 2017Q3

REPORT INFORMATION
  Report Type: Spontaneous
  Country: GR (occurrence: GR)
  Receive Date: 20170522
  Receipt Date: 20170706
  Transmission Date: 20171127
  Serious: Yes (Death, Other)
  Sender: FDA-Public Use
  Company Number: GR-009507513-1705GRC009832

PATIENT
  Age: 76 Year
  Sex: Male
  Weight: 101 kg

DRUGS (2)
  1. KEYTRUDA [Suspect]
     Active Substance: PEMBROLIZUMAB
     Indication: NON-SMALL CELL LUNG CANCER
     Dosage: UNK UNK, Q3W
     Route: 042
     Dates: start: 20170505
  2. GLUCOPHAGE [Concomitant]
     Active Substance: METFORMIN HYDROCHLORIDE
     Indication: DIABETES MELLITUS
     Dosage: 2 DF, QD

REACTIONS (3)
  - Respiratory distress [Fatal]
  - Vomiting [Fatal]
  - Fatigue [Fatal]

NARRATIVE: CASE EVENT DATE: 2017
